FAERS Safety Report 23431295 (Version 1)
Quarter: 2024Q1

REPORT INFORMATION
  Report Type: Spontaneous
  Country: US (occurrence: US)
  Receive Date: 20240123
  Receipt Date: 20240123
  Transmission Date: 20240410
  Serious: Yes (Death, Hospitalization)
  Sender: FDA-Public Use
  Company Number: US-JNJFOC-20240148024

PATIENT
  Age: 37 Year
  Sex: Female

DRUGS (5)
  1. ACETAMINOPHEN [Suspect]
     Active Substance: ACETAMINOPHEN
     Indication: Suicide attempt
     Route: 048
  2. COCAINE [Suspect]
     Active Substance: COCAINE
     Indication: Suicide attempt
     Route: 048
  3. MORPHINE [Suspect]
     Active Substance: MORPHINE
     Indication: Suicide attempt
     Route: 048
  4. METHAMPHETAMINE [Suspect]
     Active Substance: METHAMPHETAMINE
     Indication: Suicide attempt
     Route: 048
  5. AMPHETAMINE [Suspect]
     Active Substance: AMPHETAMINE
     Indication: Suicide attempt
     Route: 048

REACTIONS (1)
  - Toxicity to various agents [Fatal]
